FAERS Safety Report 9903676 (Version 1)
Quarter: 2014Q1

REPORT INFORMATION
  Report Type: Spontaneous
  Country: US (occurrence: US)
  Receive Date: 20140217
  Receipt Date: 20140217
  Transmission Date: 20141002
  Serious: Yes (Other)
  Sender: FDA-Public Use
  Company Number: US-GILEAD-2014-0094592

PATIENT
  Age: 47 Year
  Sex: Female

DRUGS (20)
  1. LETAIRIS [Suspect]
     Indication: PULMONARY HYPERTENSION
     Dosage: 10 MG, QD
     Route: 065
     Dates: start: 20120412
  2. VITAMIN D                          /00107901/ [Concomitant]
  3. METFORMIN [Concomitant]
  4. ADVIL                              /00044201/ [Concomitant]
  5. NOVOLIN [Concomitant]
  6. BACTRIM [Concomitant]
  7. JANUVIA [Concomitant]
  8. AMBIEN [Concomitant]
  9. CRESTOR [Concomitant]
  10. ACTONEL [Concomitant]
  11. LASIX                              /00032601/ [Concomitant]
  12. ALDACTONE                          /00006201/ [Concomitant]
  13. POTASSIUM [Concomitant]
  14. NEXIUM                             /01479302/ [Concomitant]
  15. DIGOXIN [Concomitant]
  16. REVATIO [Concomitant]
  17. PREDNISONE [Concomitant]
  18. OMEPRAZOLE [Concomitant]
  19. TYVASO [Concomitant]
  20. TUDORZA PRESSAIR [Concomitant]

REACTIONS (1)
  - Foot fracture [Not Recovered/Not Resolved]
